FAERS Safety Report 8554656-2 (Version None)
Quarter: 2012Q3

REPORT INFORMATION
  Report Type: 
  Country: None (occurrence: None)
  Receive Date: 20120731
  Receipt Date: 20120720
  Transmission Date: 20120928
  Serious: Yes (Hospitalization)
  Sender: FDA-Public Use
  Company Number: US-JNJFOC-20120205063

PATIENT
  Sex: Female
  Weight: 66.6 kg

DRUGS (13)
  1. MESALAMINE [Concomitant]
  2. ANTIBIOTICS [Concomitant]
  3. CHOLECALCIFEROL [Concomitant]
  4. REMICADE [Suspect]
     Indication: COLITIS ULCERATIVE
     Route: 042
  5. MERCAPTOPURINE [Concomitant]
  6. OMEPRAZOLE [Concomitant]
  7. FERROUS SULFATE TAB [Concomitant]
  8. LOPERAMIDE [Concomitant]
  9. ACETAMINOPHEN [Concomitant]
  10. MULTI-VITAMINS [Concomitant]
  11. REMICADE [Suspect]
     Route: 042
     Dates: start: 20120118
  12. PREDNISONE [Concomitant]
  13. OXYCODONE HCL [Concomitant]

REACTIONS (4)
  - COLITIS ULCERATIVE [None]
  - ABDOMINAL ABSCESS [None]
  - PANCREATITIS [None]
  - SMALL INTESTINAL OBSTRUCTION [None]
